FAERS Safety Report 24628836 (Version 2)
Quarter: 2025Q3

REPORT INFORMATION
  Report Type: Report from Study
  Country: US (occurrence: US)
  Receive Date: 20241118
  Receipt Date: 20250809
  Transmission Date: 20251020
  Serious: Yes (Other)
  Sender: ALEXION PHARMACEUTICALS
  Company Number: 202411USA001614US

PATIENT
  Sex: Female

DRUGS (5)
  1. OSIMERTINIB [Suspect]
     Active Substance: OSIMERTINIB
     Indication: Bone cancer
     Dosage: 80 MILLIGRAM, QD
  2. ROCKLATAN [Concomitant]
     Active Substance: LATANOPROST\NETARSUDIL MESYLATE
     Route: 065
  3. CALCIUM CITRATE [Concomitant]
     Active Substance: CALCIUM CITRATE
     Route: 065
  4. LEVOTHYROXINE [Concomitant]
     Active Substance: LEVOTHYROXINE
  5. ZOLEDRONIC [Concomitant]
     Active Substance: ZOLEDRONIC ACID
     Route: 065

REACTIONS (7)
  - Glaucoma [Unknown]
  - Diarrhoea [Unknown]
  - Dry skin [Unknown]
  - Hair texture abnormal [Unknown]
  - Spinal pain [Unknown]
  - Arthralgia [Unknown]
  - Product dose omission issue [Unknown]
